FAERS Safety Report 5259629-3 (Version None)
Quarter: 2007Q1

REPORT INFORMATION
  Report Type: 
  Country: None (occurrence: None)
  Receive Date: 20070309
  Receipt Date: 20070302
  Transmission Date: 20070707
  Serious: Yes (Death, Hospitalization)
  Sender: FDA-Public Use
  Company Number: AUWYE868204MAR07

PATIENT
  Sex: Male

DRUGS (1)
  1. TIGECYCLINE [Suspect]
     Indication: PNEUMONIA STAPHYLOCOCCAL
     Dosage: UNKNOWN
     Route: 042

REACTIONS (2)
  - EXSANGUINATION [None]
  - HAEMOPTYSIS [None]
